FAERS Safety Report 6451470-9 (Version None)
Quarter: 2009Q4

REPORT INFORMATION
  Report Type: 
  Country: None (occurrence: None)
  Receive Date: 20091123
  Receipt Date: 20090401
  Transmission Date: 20100525
  Serious: No
  Sender: FDA-Public Use
  Company Number: US-BRISTOL-MYERS SQUIBB COMPANY-14569453

PATIENT
  Age: 80 Year
  Sex: Female
  Weight: 53 kg

DRUGS (10)
  1. AVALIDE [Suspect]
     Dosage: TAKEN TILL 1APR2009
     Dates: start: 20090330
  2. AVAPRO [Suspect]
     Indication: HYPERTENSION
     Dosage: DOSE INCREASED TO 300MG UNTIL 29MAR2009
     Route: 048
     Dates: end: 20090329
  3. ACIPHEX [Concomitant]
  4. LEVOXYL [Concomitant]
  5. URSO 250 [Concomitant]
  6. AMBIEN [Concomitant]
  7. CLONAZEPAM [Concomitant]
  8. FOSAMAX [Concomitant]
  9. VITAMIN B-12 [Concomitant]
  10. MULTI-VITAMIN [Concomitant]

REACTIONS (1)
  - BLOOD PRESSURE INCREASED [None]
